FAERS Safety Report 10757588 (Version 1)
Quarter: 2015Q1

REPORT INFORMATION
  Report Type: Spontaneous
  Country: US (occurrence: None)
  Receive Date: 20150202
  Receipt Date: 20150202
  Transmission Date: 20150721
  Serious: No
  Sender: FDA-Public Use
  Company Number: None

PATIENT
  Sex: Female

DRUGS (1)
  1. ZOLPIDEM TARTRATE. [Suspect]
     Active Substance: ZOLPIDEM TARTRATE
     Indication: SLEEP DISORDER
     Dosage: 1 AT BEDTIME TAKEN BY MOUTH
     Route: 048
     Dates: start: 20150130, end: 20150131

REACTIONS (5)
  - Muscular weakness [None]
  - Extrapyramidal disorder [None]
  - Feeling abnormal [None]
  - Coordination abnormal [None]
  - Depressed level of consciousness [None]

NARRATIVE: CASE EVENT DATE: 20150131
